FAERS Safety Report 20920433 (Version 1)
Quarter: 2022Q2

REPORT INFORMATION
  Report Type: Spontaneous
  Country: US (occurrence: None)
  Receive Date: 20220606
  Receipt Date: 20220606
  Transmission Date: 20220721
  Serious: No
  Sender: FDA-Public Use
  Company Number: None

PATIENT
  Age: 80 Year
  Sex: Male

DRUGS (1)
  1. EMPAGLIFLOZIN [Suspect]
     Active Substance: EMPAGLIFLOZIN
     Dosage: 25 MG EVERY DAY PO?
     Route: 048
     Dates: start: 20220309, end: 20220412

REACTIONS (3)
  - Constipation [None]
  - Tachycardia [None]
  - Fatigue [None]

NARRATIVE: CASE EVENT DATE: 20220412
